FAERS Safety Report 8796322 (Version 1)
Quarter: 2012Q4

REPORT INFORMATION
  Report Type: 
  Country: BR (occurrence: BR)
  Receive Date: 20120919
  Receipt Date: 20120919
  Transmission Date: 20130627
  Serious: Yes (Hospitalization)
  Sender: FDA-Public Use
  Company Number: BR-PFIZER INC-2012084980

PATIENT
  Age: 74 Year
  Sex: Female
  Weight: 59 kg

DRUGS (8)
  1. SUTENT [Suspect]
     Indication: RENAL CELL CARCINOMA
     Dosage: 50 mg daily (cycle 2/1)
     Route: 048
     Dates: start: 20120301, end: 2012
  2. SOMALGIN [Concomitant]
     Dosage: 100 mg, UNK
  3. SIMVASTATIN [Concomitant]
     Dosage: 20 mg, UNK
  4. CARVEDILOL [Concomitant]
     Dosage: 20 mg, UNK
  5. MONOCORDIL [Concomitant]
     Dosage: 20 mg, UNK
  6. ENALAPRIL [Concomitant]
     Dosage: 20 mg, UNK
  7. CLORANA [Concomitant]
     Dosage: 20 mg, UNK
  8. AMLODIPINE [Concomitant]
     Dosage: 20 mg, UNK

REACTIONS (13)
  - Epistaxis [Unknown]
  - Mouth injury [Unknown]
  - Eye swelling [Unknown]
  - Tongue injury [Unknown]
  - Skin fissures [Unknown]
  - Weight decreased [Unknown]
  - Wound [Unknown]
  - Platelet count decreased [Unknown]
  - Dysgeusia [Unknown]
  - Pruritus [Unknown]
  - Gait disturbance [Not Recovered/Not Resolved]
  - Pain in extremity [Not Recovered/Not Resolved]
  - Hypoaesthesia [Unknown]
